FAERS Safety Report 7088224-9 (Version None)
Quarter: 2010Q4

REPORT INFORMATION
  Report Type: 
  Country: None (occurrence: None)
  Receive Date: 20101028
  Receipt Date: 20101014
  Transmission Date: 20110411
  Serious: Yes (Disabling)
  Sender: FDA-Public Use
  Company Number: APP200900474

PATIENT
  Age: 33 Year
  Sex: Male
  Weight: 79.3795 kg

DRUGS (4)
  1. SENSORCAINE [Suspect]
     Indication: MUSCULOSKELETAL PAIN
     Dosage: 300 ML, CONTINUOUS VIA PUMP (FLOW RATE UNKNOWN), INTRA-ARTICULAR
     Route: 014
     Dates: start: 20050413
  2. BUPIVACAINE HYDROCHLORIDE AND EPINEPHRINE [Suspect]
     Indication: PRODUCT USED FOR UNKNOWN INDICATION
     Dosage: 20 ML
     Dates: start: 20050413
  3. I-FLOW ON-Q PAINBUSTER PUMP [Suspect]
     Indication: MUSCULOSKELETAL PAIN
     Dates: start: 20050413
  4. ANCEF [Concomitant]

REACTIONS (4)
  - JOINT INJURY [None]
  - MOVEMENT DISORDER [None]
  - MUSCULOSKELETAL DISCOMFORT [None]
  - MUSCULOSKELETAL PAIN [None]
